FAERS Safety Report 25465700 (Version 1)
Quarter: 2025Q2

REPORT INFORMATION
  Report Type: Report from Study
  Country: JP (occurrence: JP)
  Receive Date: 20250623
  Receipt Date: 20250623
  Transmission Date: 20250716
  Serious: Yes (Death, Other)
  Sender: RECORDATI
  Company Number: JP-ORPHANEU-2025004313

PATIENT
  Age: 83 Year
  Sex: Female
  Weight: 61.4 kg

DRUGS (42)
  1. ISTURISA [Suspect]
     Active Substance: OSILODROSTAT PHOSPHATE
     Indication: Cushing^s syndrome
     Dosage: 2MG/DAILY, BID
     Route: 065
     Dates: start: 20220302, end: 20220312
  2. ISTURISA [Suspect]
     Active Substance: OSILODROSTAT PHOSPHATE
     Dosage: 4MG/DAILY, BID
     Route: 065
     Dates: start: 20220313, end: 20220323
  3. ISTURISA [Suspect]
     Active Substance: OSILODROSTAT PHOSPHATE
     Dosage: 6MG/DAILY, BID
     Route: 065
     Dates: start: 20220324, end: 20220406
  4. ISTURISA [Suspect]
     Active Substance: OSILODROSTAT PHOSPHATE
     Dosage: 8MG/DAILY, BID
     Route: 065
     Dates: start: 20220407, end: 20220413
  5. ISTURISA [Suspect]
     Active Substance: OSILODROSTAT PHOSPHATE
     Dosage: 12MG/DAILY, BID
     Route: 065
     Dates: start: 20220414, end: 20220420
  6. ISTURISA [Suspect]
     Active Substance: OSILODROSTAT PHOSPHATE
     Dosage: 14MG/DAILY, BID
     Route: 065
     Dates: start: 20220421, end: 20220427
  7. ISTURISA [Suspect]
     Active Substance: OSILODROSTAT PHOSPHATE
     Dosage: 16MG/DAILY, BID
     Route: 065
     Dates: start: 20220428, end: 20220505
  8. ISTURISA [Suspect]
     Active Substance: OSILODROSTAT PHOSPHATE
     Dosage: 20MG/DAILY, BID
     Route: 065
     Dates: start: 20220506, end: 20220601
  9. ISTURISA [Suspect]
     Active Substance: OSILODROSTAT PHOSPHATE
     Dosage: 22MG/DAILY, BID
     Route: 065
     Dates: start: 20220602, end: 20220615
  10. ISTURISA [Suspect]
     Active Substance: OSILODROSTAT PHOSPHATE
     Dosage: 24MG/DAILY, BID
     Route: 065
     Dates: start: 20220616, end: 20220629
  11. ISTURISA [Suspect]
     Active Substance: OSILODROSTAT PHOSPHATE
     Dosage: 26MG/DAILY, BID
     Route: 065
     Dates: start: 20220630, end: 20220713
  12. ISTURISA [Suspect]
     Active Substance: OSILODROSTAT PHOSPHATE
     Dosage: 30MG/DAILY, BID
     Route: 065
     Dates: start: 20220714, end: 20220802
  13. ISTURISA [Suspect]
     Active Substance: OSILODROSTAT PHOSPHATE
     Dosage: 35MG/DAILY, BID (MORNING 18 MG AND EVENING 17 MG)
     Route: 065
     Dates: start: 20220803, end: 20220807
  14. ISTURISA [Suspect]
     Active Substance: OSILODROSTAT PHOSPHATE
     Dosage: 40MG/DAILY, BID
     Route: 065
     Dates: start: 20220808, end: 20220812
  15. ISTURISA [Suspect]
     Active Substance: OSILODROSTAT PHOSPHATE
     Dosage: 45MG/DAILY, BID (MORNING 25 MG AND EVENING 20)
     Route: 065
     Dates: start: 20220813, end: 20220823
  16. CORTRIL [Concomitant]
     Active Substance: HYDROCORTISONE
     Indication: Prophylaxis
     Route: 048
     Dates: end: 20220926
  17. NIFEDIPINE [Concomitant]
     Active Substance: NIFEDIPINE
     Indication: Product used for unknown indication
     Route: 048
     Dates: end: 20220916
  18. ROSUVASTATIN [Concomitant]
     Active Substance: ROSUVASTATIN
     Indication: Product used for unknown indication
     Route: 048
     Dates: end: 20220902
  19. ETIZOLAM [Concomitant]
     Active Substance: ETIZOLAM
     Indication: Product used for unknown indication
     Route: 048
     Dates: end: 20220815
  20. LANSOPRAZOLE [Concomitant]
     Active Substance: LANSOPRAZOLE
     Indication: Product used for unknown indication
     Route: 048
     Dates: end: 20221015
  21. BONVIVA [Concomitant]
     Active Substance: IBANDRONATE SODIUM
     Indication: Product used for unknown indication
     Route: 048
     Dates: start: 20220324, end: 20220701
  22. MITIGLINIDE [Concomitant]
     Active Substance: MITIGLINIDE
     Indication: Product used for unknown indication
     Route: 048
     Dates: start: 20220324, end: 20220808
  23. SENNOSIDES [Concomitant]
     Active Substance: SENNOSIDES
     Indication: Product used for unknown indication
     Route: 048
     Dates: end: 20221015
  24. POTASSIUM ASPARTATE [Concomitant]
     Active Substance: POTASSIUM ASPARTATE
     Indication: Product used for unknown indication
     Route: 048
     Dates: start: 20220421, end: 20220912
  25. PEMAFIBRATE [Concomitant]
     Active Substance: PEMAFIBRATE
     Indication: Product used for unknown indication
     Route: 048
     Dates: end: 20220902
  26. SPIRONOLACTONE [Concomitant]
     Active Substance: SPIRONOLACTONE
     Indication: Product used for unknown indication
     Route: 048
     Dates: start: 20220602, end: 20220823
  27. MAGNESIUM OXIDE [Concomitant]
     Active Substance: MAGNESIUM OXIDE
     Indication: Product used for unknown indication
     Route: 048
     Dates: start: 20220714, end: 20220921
  28. ACTONEL [Concomitant]
     Active Substance: RISEDRONATE SODIUM
     Indication: Product used for unknown indication
     Route: 048
     Dates: end: 20220901
  29. MITIGLINIDE [Concomitant]
     Active Substance: MITIGLINIDE
     Indication: Product used for unknown indication
     Route: 048
     Dates: start: 20220324, end: 20220808
  30. LEVOFLOXACIN [Concomitant]
     Active Substance: LEVOFLOXACIN
     Indication: Product used for unknown indication
     Route: 048
     Dates: start: 20220803, end: 20220803
  31. LEVOFLOXACIN [Concomitant]
     Active Substance: LEVOFLOXACIN
     Route: 048
     Dates: start: 20220804, end: 20220807
  32. HYALURONATE SODIUM [Concomitant]
     Active Substance: HYALURONATE SODIUM
     Indication: Product used for unknown indication
     Route: 047
     Dates: start: 20220807, end: 20221015
  33. LUSEOGLIFLOZIN [Concomitant]
     Active Substance: LUSEOGLIFLOZIN
     Indication: Product used for unknown indication
     Route: 048
     Dates: start: 20220808, end: 20221015
  34. FUROSEMIDE [Concomitant]
     Active Substance: FUROSEMIDE
     Indication: Product used for unknown indication
     Route: 048
     Dates: start: 20220813, end: 20220930
  35. METOPIRONE [Concomitant]
     Active Substance: METYRAPONE
     Indication: Product used for unknown indication
     Route: 048
     Dates: start: 20220824, end: 20220824
  36. METOPIRONE [Concomitant]
     Active Substance: METYRAPONE
     Route: 048
     Dates: start: 20220825, end: 20221015
  37. ESAXERENONE [Concomitant]
     Active Substance: ESAXERENONE
     Indication: Product used for unknown indication
     Route: 048
     Dates: start: 20220824, end: 20220905
  38. LUNESTA [Concomitant]
     Active Substance: ESZOPICLONE
     Indication: Product used for unknown indication
     Route: 048
     Dates: start: 20220918, end: 20221015
  39. AMITIZA [Concomitant]
     Active Substance: LUBIPROSTONE
     Indication: Product used for unknown indication
     Route: 065
     Dates: start: 20220922, end: 20221015
  40. TRAZODONE [Concomitant]
     Active Substance: TRAZODONE HYDROCHLORIDE
     Indication: Product used for unknown indication
     Route: 065
     Dates: start: 20220922, end: 20221015
  41. CALONAL [Concomitant]
     Active Substance: ACETAMINOPHEN
     Indication: Product used for unknown indication
     Route: 065
     Dates: start: 20221002, end: 20221015
  42. METOCLOPRAMIDE [Concomitant]
     Active Substance: METOCLOPRAMIDE
     Indication: Product used for unknown indication
     Route: 065
     Dates: start: 20221005, end: 20221013

REACTIONS (4)
  - Adrenal gland cancer metastatic [Fatal]
  - Gastric ulcer [Fatal]
  - Oesophageal ulcer [Fatal]
  - Wrong technique in product usage process [Recovered/Resolved]

NARRATIVE: CASE EVENT DATE: 20220803
